APPROVED DRUG PRODUCT: ACETAMINOPHEN
Active Ingredient: ACETAMINOPHEN
Strength: 650MG
Dosage Form/Route: SUPPOSITORY;RECTAL
Application: A073108 | Product #001
Applicant: ABLE LABORATORIES INC
Approved: Feb 27, 1995 | RLD: No | RS: No | Type: DISCN